FAERS Safety Report 5428414-1 (Version None)
Quarter: 2007Q3

REPORT INFORMATION
  Report Type: 
  Country: None (occurrence: None)
  Receive Date: 20070828
  Receipt Date: 20070202
  Transmission Date: 20080115
  Serious: No
  Sender: FDA-Public Use
  Company Number: US-MERCK-0702USA00528M

PATIENT
  Age: 32 Year
  Sex: Female

DRUGS (1)
  1. MAXALT [Suspect]
     Indication: MIGRAINE
     Route: 048
     Dates: end: 20060901

REACTIONS (2)
  - DRUG EXPOSURE DURING PREGNANCY [None]
  - INTENTIONAL DRUG MISUSE [None]
